FAERS Safety Report 6020702-3 (Version None)
Quarter: 2008Q4

REPORT INFORMATION
  Report Type: 
  Country: None (occurrence: None)
  Receive Date: 20081222
  Receipt Date: 20081219
  Transmission Date: 20090506
  Serious: Yes (Hospitalization)
  Sender: FDA-Public Use
  Company Number: SP02112

PATIENT
  Age: 56 Year
  Sex: Female

DRUGS (9)
  1. VISICOL [Suspect]
     Indication: ENDOSCOPY
     Dosage: 50 GM, ORAL
     Route: 048
     Dates: start: 20081020, end: 20081020
  2. VISICOL [Suspect]
     Indication: PREOPERATIVE CARE
     Dosage: 50 GM, ORAL
     Route: 048
     Dates: start: 20081020, end: 20081020
  3. ETIZOLAM [Concomitant]
  4. ATORVASTATIN BESILATE [Concomitant]
  5. GLUCAGON [Concomitant]
  6. SODIUM PICOSULFATE [Concomitant]
  7. AMLODIPINE BESILATE [Concomitant]
  8. SODIUM RISEDRONATE HYDRATE [Concomitant]
  9. NIZATIDINE [Concomitant]

REACTIONS (7)
  - ANXIETY [None]
  - BLOOD POTASSIUM DECREASED [None]
  - DEHYDRATION [None]
  - HYPOAESTHESIA [None]
  - NAUSEA [None]
  - PARALYSIS FLACCID [None]
  - THIRST [None]
